FAERS Safety Report 8450960 (Version 4)
Quarter: 2013Q2

REPORT INFORMATION
  Report Type: Report from Study
  Country: JP (occurrence: JP)
  Receive Date: 20120309
  Receipt Date: 20130531
  Transmission Date: 20140414
  Serious: Yes (Hospitalization, Other)
  Sender: FDA-Public Use
  Company Number: JP-VERTEX PHARMACEUTICALS INC.-AE-2012-003193

PATIENT
  Age: 67 Year
  Sex: Female

DRUGS (15)
  1. VX-950 (TELAPREVIR) [Suspect]
     Indication: CHRONIC HEPATITIS C
     Dosage: 2250 MG, QD
     Route: 048
     Dates: start: 20120116, end: 20120223
  2. VX-950 (TELAPREVIR) [Suspect]
     Dosage: 1500 MG, QD
     Route: 048
     Dates: start: 20120224, end: 20120409
  3. REBETOL [Suspect]
     Indication: CHRONIC HEPATITIS C
     Dosage: 600 MG, QD
     Route: 048
     Dates: start: 20120116, end: 20120226
  4. REBETOL [Suspect]
     Dosage: 400 MG, QD
     Route: 048
     Dates: start: 20120227, end: 20120308
  5. REBETOL [Suspect]
     Dosage: 200 MG/2 DAYS
     Route: 048
     Dates: start: 20120309, end: 20120414
  6. REBETOL [Suspect]
     Dosage: 400MG/2 DAYS
     Route: 048
     Dates: start: 20120310, end: 20120415
  7. REBETOL [Suspect]
     Dosage: 400 MG, QD
     Route: 048
     Dates: start: 20120416, end: 20120422
  8. REBETOL [Suspect]
     Dosage: 600 MG, QD
     Route: 048
     Dates: start: 20120423, end: 20120513
  9. PEGINTRON [Suspect]
     Indication: CHRONIC HEPATITIS C
     Dosage: 80 ?G, QW
     Route: 058
     Dates: start: 20120116, end: 20120507
  10. ALLEGRA [Concomitant]
     Dosage: 120 MG, QD
     Route: 048
     Dates: start: 20120116, end: 20120513
  11. RIKKUNSHI-TO [Concomitant]
     Dosage: 7.5 G, QD
     Route: 048
     Dates: start: 20120116, end: 20120513
  12. FLUITRAN [Concomitant]
     Dosage: 2 MG, QD
     Route: 048
     Dates: start: 20120116
  13. ARTIST [Concomitant]
     Dosage: 10 MG, QD
     Route: 048
     Dates: start: 20120116
  14. DIOVAN [Concomitant]
     Dosage: 80 MG, QD
     Route: 048
     Dates: start: 20120116
  15. DIOVAN [Concomitant]
     Dosage: 40 MG, QD
     Route: 048
     Dates: start: 20120605

REACTIONS (5)
  - Brain abscess [Recovered/Resolved]
  - Hypokalaemia [Recovered/Resolved]
  - Blood creatinine increased [Recovered/Resolved]
  - Nausea [Recovered/Resolved]
  - Blood uric acid increased [Recovered/Resolved]
